FAERS Safety Report 11160018 (Version 2)
Quarter: 2015Q2

REPORT INFORMATION
  Report Type: Spontaneous
  Country: MX (occurrence: MX)
  Receive Date: 20150603
  Receipt Date: 20150619
  Transmission Date: 20150821
  Serious: Yes (Hospitalization, Other)
  Sender: FDA-Public Use
  Company Number: PHHY2015MX066428

PATIENT
  Age: 79 Year
  Sex: Female

DRUGS (3)
  1. EXELON PATCH [Suspect]
     Active Substance: RIVASTIGMINE
     Indication: DELIRIUM
     Dosage: 4.6 MG (PATCH 5CM2), QD
     Route: 062
     Dates: start: 20150130
  2. MICARDIS [Concomitant]
     Active Substance: TELMISARTAN
     Indication: HYPERTENSION
     Dosage: 0.5 DF (HALF TABLET), QD (DEPENDING ON THE PRESSURE SHE HAD)
     Route: 065
  3. ADEPSIQUE [Concomitant]
     Indication: PRODUCT USED FOR UNKNOWN INDICATION
     Dosage: 0.5 DF (HALF TABLET), QD
     Route: 048

REACTIONS (5)
  - Dysstasia [Unknown]
  - Off label use [Unknown]
  - Logorrhoea [Unknown]
  - Cerebrovascular accident [Unknown]
  - Memory impairment [Unknown]

NARRATIVE: CASE EVENT DATE: 20150130
